FAERS Safety Report 8487194 (Version 3)
Quarter: 2014Q1

REPORT INFORMATION
  Report Type: Spontaneous
  Country: US (occurrence: US)
  Receive Date: 20120402
  Receipt Date: 20140110
  Transmission Date: 20141002
  Serious: Yes (Hospitalization, Other)
  Sender: FDA-Public Use
  Company Number: US-ASTRAZENECA-2010SE60051

PATIENT
  Age: 64 Year
  Sex: Female
  Weight: 83.9 kg

DRUGS (4)
  1. NEXIUM [Suspect]
     Indication: GASTROOESOPHAGEAL REFLUX DISEASE
     Route: 048
     Dates: start: 2008, end: 20140101
  2. PRILOSEC [Suspect]
     Route: 048
  3. CHEMO [Suspect]
     Route: 065
  4. RADIATION [Suspect]
     Route: 065

REACTIONS (12)
  - Cardiac failure [Unknown]
  - Thrombosis [Unknown]
  - Pneumonia [Unknown]
  - Bladder cancer [Unknown]
  - Fall [Unknown]
  - Ankle fracture [Unknown]
  - Breast cancer female [Unknown]
  - Cardiac disorder [Unknown]
  - Dyspepsia [Unknown]
  - Nausea [Unknown]
  - Drug ineffective [Unknown]
  - Drug dose omission [Unknown]
